FAERS Safety Report 8575730-0 (Version None)
Quarter: 2012Q3

REPORT INFORMATION
  Report Type: 
  Country: None (occurrence: None)
  Receive Date: 20120807
  Receipt Date: 20120730
  Transmission Date: 20120928
  Serious: Yes (Hospitalization)
  Sender: FDA-Public Use
  Company Number: CH-US-EMD SERONO, INC.-7126323

PATIENT
  Sex: Female

DRUGS (5)
  1. LYRICA [Concomitant]
     Indication: PRODUCT USED FOR UNKNOWN INDICATION
  2. EFFEXOR [Concomitant]
     Indication: PRODUCT USED FOR UNKNOWN INDICATION
  3. REBIF [Suspect]
     Route: 058
  4. REBIF [Suspect]
     Indication: MULTIPLE SCLEROSIS
     Route: 058
  5. REBIF [Suspect]
     Route: 058

REACTIONS (15)
  - INSOMNIA [None]
  - DECREASED ACTIVITY [None]
  - MUSCLE SPASMS [None]
  - MENTAL DISORDER [None]
  - FATIGUE [None]
  - MULTIPLE SCLEROSIS RELAPSE [None]
  - PARAESTHESIA [None]
  - PAIN IN EXTREMITY [None]
  - HEADACHE [None]
  - DISTURBANCE IN ATTENTION [None]
  - MOOD SWINGS [None]
  - INJECTION SITE PAIN [None]
  - MYALGIA [None]
  - DEPRESSION [None]
  - ERYTHEMA [None]
